FAERS Safety Report 4585552-3 (Version None)
Quarter: 2005Q1

REPORT INFORMATION
  Report Type: 
  Country: None (occurrence: None)
  Receive Date: 20050214
  Receipt Date: 20050131
  Transmission Date: 20050727
  Serious: Yes (Hospitalization, Other)
  Sender: FDA-Public Use
  Company Number: HQWYE259005NOV04

PATIENT
  Age: 58 Year
  Sex: Male
  Weight: 128.03 kg

DRUGS (12)
  1. RAPAMUNE [Suspect]
     Indication: PROPHYLAXIS AGAINST TRANSPLANT REJECTION
     Dosage: SEE IMAGE
     Route: 048
     Dates: start: 20031210, end: 20040126
  2. RAPAMUNE [Suspect]
     Indication: PROPHYLAXIS AGAINST TRANSPLANT REJECTION
     Dosage: SEE IMAGE
     Route: 048
     Dates: start: 20040101
  3. NEORAL [Suspect]
     Indication: IMMUNOSUPPRESSANT DRUG THERAPY
     Dosage: 225 UNITS , 9 AM AND 9 PM
     Dates: end: 20040101
  4. PREDNISONE [Concomitant]
  5. OMEPRAZOLE [Concomitant]
  6. NORVASC [Concomitant]
  7. VALCYTE [Concomitant]
  8. BACTRIM [Concomitant]
  9. BUMEX [Concomitant]
  10. INSULIN [Concomitant]
  11. CLONIDINE [Concomitant]
  12. LEVAQUIN [Concomitant]

REACTIONS (9)
  - ANURIA [None]
  - BLOOD CREATINE INCREASED [None]
  - HAEMODIALYSIS [None]
  - HYDRONEPHROSIS [None]
  - OBSTRUCTIVE UROPATHY [None]
  - RENAL LYMPHOCELE [None]
  - RENAL TUBULAR NECROSIS [None]
  - THERAPY NON-RESPONDER [None]
  - THROMBOTIC MICROANGIOPATHY [None]
